FAERS Safety Report 6266466-X (Version None)
Quarter: 2009Q3

REPORT INFORMATION
  Report Type: 
  Country: None (occurrence: None)
  Receive Date: 20090710
  Receipt Date: 20090629
  Transmission Date: 20100115
  Serious: Yes (Hospitalization)
  Sender: FDA-Public Use
  Company Number: 230346K09CAN

PATIENT
  Age: 34 Year
  Sex: Female

DRUGS (4)
  1. REBIF [Suspect]
     Indication: MULTIPLE SCLEROSIS
     Dosage: 44 MCG, 3 IN 1 WEEKS; 44 MCG, 1 IN 2 WEEKS; 44 MCG, 1 IN 1 WEEKS; 44 MCG, 2 IN 1 WEEKS
     Dates: start: 20040920, end: 20071201
  2. REBIF [Suspect]
     Indication: MULTIPLE SCLEROSIS
     Dosage: 44 MCG, 3 IN 1 WEEKS; 44 MCG, 1 IN 2 WEEKS; 44 MCG, 1 IN 1 WEEKS; 44 MCG, 2 IN 1 WEEKS
     Dates: start: 20080101, end: 20080101
  3. REBIF [Suspect]
     Indication: MULTIPLE SCLEROSIS
     Dosage: 44 MCG, 3 IN 1 WEEKS; 44 MCG, 1 IN 2 WEEKS; 44 MCG, 1 IN 1 WEEKS; 44 MCG, 2 IN 1 WEEKS
     Dates: start: 20080201, end: 20080101
  4. REBIF [Suspect]
     Indication: MULTIPLE SCLEROSIS
     Dosage: 44 MCG, 3 IN 1 WEEKS; 44 MCG, 1 IN 2 WEEKS; 44 MCG, 1 IN 1 WEEKS; 44 MCG, 2 IN 1 WEEKS
     Dates: start: 20080101, end: 20080701

REACTIONS (2)
  - HEADACHE [None]
  - INTERVERTEBRAL DISC PROTRUSION [None]
